FAERS Safety Report 7076997-0 (Version None)
Quarter: 2010Q4

REPORT INFORMATION
  Report Type: 
  Country: None (occurrence: None)
  Receive Date: 20101101
  Receipt Date: 20101025
  Transmission Date: 20110411
  Serious: Yes (Hospitalization)
  Sender: FDA-Public Use
  Company Number: DE-TEVA-228642ISR

PATIENT
  Sex: Male

DRUGS (15)
  1. PREDNISOLONE [Suspect]
     Indication: PROSTATE CANCER METASTATIC
     Route: 048
     Dates: start: 20090106, end: 20090327
  2. PLACEBO [Suspect]
     Indication: PROSTATE CANCER METASTATIC
     Route: 048
     Dates: start: 20090107, end: 20090327
  3. OMEPRAZOLE [Concomitant]
     Indication: PROPHYLAXIS
     Route: 048
     Dates: start: 20071001
  4. TRAMADOL [Concomitant]
     Indication: BACK PAIN
     Route: 048
     Dates: start: 20090204
  5. DICLOFENAC SODIUM [Concomitant]
     Indication: CANCER PAIN
     Route: 048
     Dates: start: 20090101
  6. NULYTELY [Concomitant]
     Indication: CONSTIPATION
     Route: 048
     Dates: start: 20090321
  7. TORSEMIDE [Concomitant]
     Indication: HYPERTENSION
     Route: 048
     Dates: start: 20080201
  8. METAMIZOLE SODIUM [Concomitant]
     Indication: BACK PAIN
     Route: 048
     Dates: start: 20090204
  9. TAMSULOSIN [Concomitant]
     Indication: BENIGN PROSTATIC HYPERPLASIA
     Route: 048
     Dates: start: 20090204
  10. IBUPROFEN [Concomitant]
     Indication: CANCER PAIN
     Route: 048
     Dates: start: 20090309
  11. ONDANSETRON [Concomitant]
     Indication: CANCER PAIN
     Route: 048
     Dates: start: 20090309
  12. LACTULOSE [Concomitant]
     Indication: CONSTIPATION
     Route: 048
     Dates: start: 20090311
  13. MORPHINE [Concomitant]
     Indication: CANCER PAIN
     Route: 048
     Dates: start: 20090309
  14. FONDAPARINUX SODIUM [Concomitant]
     Indication: THROMBOSIS PROPHYLAXIS
     Route: 058
     Dates: start: 20090219
  15. LEUPROLIDE ACETATE [Concomitant]
     Indication: CANCER PAIN
     Route: 058
     Dates: start: 20090107

REACTIONS (3)
  - PNEUMONIA [None]
  - RENAL FAILURE ACUTE [None]
  - SYNCOPE [None]
